FAERS Safety Report 4457544-6 (Version None)
Quarter: 2004Q3

REPORT INFORMATION
  Report Type: 
  Country: None (occurrence: None)
  Receive Date: 20040902
  Receipt Date: 20040428
  Transmission Date: 20050211
  Serious: Yes (Hospitalization)
  Sender: FDA-Public Use
  Company Number: 1606

PATIENT
  Age: 66 Year
  Sex: Female

DRUGS (7)
  1. AVINZA [Suspect]
     Indication: HEADACHE
     Dosage: 30 MG QD PO
     Route: 048
     Dates: start: 20040304, end: 20040301
  2. AVINZA [Suspect]
     Indication: HEADACHE
     Dosage: 60 MG QD PO
     Route: 048
     Dates: start: 20040301, end: 20040301
  3. AVINZA [Suspect]
     Indication: HEADACHE
     Dosage: 90 MG QD PO
     Route: 048
     Dates: start: 20040301, end: 20040301
  4. AVINZA [Suspect]
     Indication: HEADACHE
     Dosage: 120 MG QD PO
     Route: 048
     Dates: start: 20040301, end: 20040409
  5. OXCARBAZEPINE [Concomitant]
  6. SERTRALINE HCL [Concomitant]
  7. VERAPAMIL [Concomitant]

REACTIONS (7)
  - ABDOMINAL PAIN [None]
  - DEPRESSION [None]
  - DIARRHOEA [None]
  - DRUG INEFFECTIVE [None]
  - OEDEMA [None]
  - OEDEMA PERIPHERAL [None]
  - VOMITING [None]
